FAERS Safety Report 9232544 (Version 2)
Quarter: 2013Q2

REPORT INFORMATION
  Report Type: Spontaneous
  Country: CO (occurrence: CO)
  Receive Date: 20130416
  Receipt Date: 20130422
  Transmission Date: 20140414
  Serious: Yes (Hospitalization)
  Sender: FDA-Public Use
  Company Number: CO-009507513-1304COL005852

PATIENT
  Age: 65 Year
  Sex: Female

DRUGS (4)
  1. PEG-INTRON [Suspect]
     Indication: HEPATITIS C
     Dosage: UNK, QW
     Route: 058
     Dates: start: 20120926, end: 20130409
  2. VICTRELIS [Suspect]
     Indication: HEPATITIS C
     Dosage: 2400 MG, QD
     Route: 048
     Dates: start: 20120926, end: 20130409
  3. REBETOL [Suspect]
     Indication: HEPATITIS C
     Dosage: 600 MG, QD
     Route: 048
     Dates: start: 20120926, end: 20130409
  4. DANAZOL [Concomitant]
     Dosage: 100 MG, BID
     Route: 048

REACTIONS (5)
  - Hiccups [Not Recovered/Not Resolved]
  - Asthenia [Not Recovered/Not Resolved]
  - Malaise [Not Recovered/Not Resolved]
  - Thrombocytopenia [Unknown]
  - Viral test positive [Unknown]
